FAERS Safety Report 10455025 (Version 1)
Quarter: 2014Q3

REPORT INFORMATION
  Report Type: Spontaneous
  Country: IT (occurrence: IT)
  Receive Date: 20140915
  Receipt Date: 20140915
  Transmission Date: 20150326
  Serious: Yes (Hospitalization)
  Sender: FDA-Public Use
  Company Number: PHHY2014IT115579

PATIENT
  Age: 77 Year
  Sex: Female

DRUGS (6)
  1. LANOXIN [Suspect]
     Active Substance: DIGOXIN
     Dosage: 0.250 MG, QD
     Route: 048
     Dates: start: 20140101, end: 20140827
  2. EUTIROX [Concomitant]
     Active Substance: LEVOTHYROXINE SODIUM
     Dosage: 25 UG,   UNK
  3. LEVOSULPIRIDE [Concomitant]
     Active Substance: LEVOSULPIRIDE
  4. VERAPAMIL [Concomitant]
     Active Substance: VERAPAMIL HYDROCHLORIDE
  5. RANITIDINE [Concomitant]
     Active Substance: RANITIDINE\RANITIDINE HYDROCHLORIDE
  6. LISINOPRIL. [Suspect]
     Active Substance: LISINOPRIL
     Dosage: 5 MG, QD
     Route: 048
     Dates: start: 20140101, end: 20140827

REACTIONS (5)
  - Gait disturbance [Recovered/Resolved]
  - Bradyphrenia [Recovered/Resolved]
  - Hyponatraemia [Recovered/Resolved]
  - Toxicity to various agents [Recovered/Resolved]
  - Bradykinesia [Recovered/Resolved]

NARRATIVE: CASE EVENT DATE: 20140827
